FAERS Safety Report 9148402 (Version 3)
Quarter: 2013Q3

REPORT INFORMATION
  Report Type: Spontaneous
  Country: KR (occurrence: None)
  Receive Date: 20130220
  Receipt Date: 20130829
  Transmission Date: 20140515
  Serious: Yes (Death)
  Sender: FDA-Public Use
  Company Number: JP-2013-10291

PATIENT
  Age: 79 Year
  Sex: Male
  Weight: 50.4 kg

DRUGS (11)
  1. OPC-13013 [Suspect]
     Indication: CORONARY ARTERY DISEASE
     Route: 048
     Dates: start: 20110331, end: 20110401
  2. OPC-13013 [Suspect]
     Indication: CORONARY ARTERIAL STENT INSERTION
     Route: 048
     Dates: start: 20110331, end: 20110401
  3. ACETYLSALICYLIC ACID [Suspect]
     Indication: CORONARY ARTERY DISEASE
     Route: 048
     Dates: start: 20110331, end: 20110402
  4. ACETYLSALICYLIC ACID [Suspect]
     Indication: CORONARY ARTERIAL STENT INSERTION
     Route: 048
     Dates: start: 20110331, end: 20110402
  5. CLOPIDOGREL [Suspect]
     Indication: CORONARY ARTERY DISEASE
     Route: 048
     Dates: start: 20110331, end: 20110402
  6. CLOPIDOGREL [Suspect]
     Indication: CORONARY ARTERIAL STENT INSERTION
     Route: 048
     Dates: start: 20110331, end: 20110402
  7. LIPITOR (ATORVASTATIN CALCIUM) [Concomitant]
  8. HERBEN (DILTIAZEM HYDROCHLORIDE) [Concomitant]
  9. DILATREND (CARVEDILOL) [Concomitant]
  10. VASTINAN MR (TRIMETAZIDINE HYDROCHLORIDE) [Concomitant]
  11. SIGMART (NICORANDIL) [Concomitant]

REACTIONS (10)
  - Subarachnoid haemorrhage [None]
  - Heart rate decreased [None]
  - Pulmonary oedema [None]
  - Fall [None]
  - Dizziness [None]
  - Subdural haematoma [None]
  - Condition aggravated [None]
  - Blood pressure decreased [None]
  - Brain stem syndrome [None]
  - Oedema [None]
